FAERS Safety Report 25396854 (Version 1)
Quarter: 2025Q2

REPORT INFORMATION
  Report Type: Spontaneous
  Country: US (occurrence: US)
  Receive Date: 20250604
  Receipt Date: 20250604
  Transmission Date: 20250717
  Serious: Yes (Other)
  Sender: AMGEN
  Company Number: US-AMGEN-USASP2025105385

PATIENT

DRUGS (2)
  1. ADALIMUMAB [Suspect]
     Active Substance: ADALIMUMAB
     Indication: Hidradenitis
     Route: 065
  2. INFLIXIMAB [Suspect]
     Active Substance: INFLIXIMAB
     Indication: Hidradenitis
     Route: 040

REACTIONS (80)
  - Loss of consciousness [Unknown]
  - Renal impairment [Unknown]
  - Anaphylactoid reaction [Unknown]
  - Non-Hodgkin^s lymphoma [Unknown]
  - Neutropenia [Unknown]
  - Polyarthritis [Unknown]
  - Clostridium difficile colitis [Unknown]
  - Lymphoma [Unknown]
  - Haemophagocytic lymphohistiocytosis [Unknown]
  - Breast cancer [Unknown]
  - Pyoderma gangrenosum [Unknown]
  - Squamous cell carcinoma [Unknown]
  - Device issue [Unknown]
  - Wrong technique in product usage process [Unknown]
  - Injection site haemorrhage [Unknown]
  - Upper respiratory tract infection [Unknown]
  - Needle issue [Unknown]
  - Incorrect dose administered [Unknown]
  - Intentional dose omission [Unknown]
  - Hypoaesthesia [Unknown]
  - Unevaluable event [Unknown]
  - Sinusitis [Unknown]
  - Therapy interrupted [Unknown]
  - Injection site pruritus [Unknown]
  - Therapeutic product effect incomplete [Unknown]
  - Illness [Unknown]
  - Injection site bruising [Unknown]
  - Surgery [Unknown]
  - Injection site pain [Unknown]
  - Nasopharyngitis [Unknown]
  - Influenza [Unknown]
  - Infusion related reaction [Unknown]
  - Vasculitis necrotising [Unknown]
  - Pallor [Unknown]
  - Adverse event [Unknown]
  - Intentional product use issue [Unknown]
  - Drug specific antibody present [Unknown]
  - Blood iron decreased [Unknown]
  - Flushing [Unknown]
  - Aggression [Unknown]
  - Bedridden [Unknown]
  - Drug resistance [Unknown]
  - Therapy non-responder [Unknown]
  - Oedema [Unknown]
  - Hypotension [Unknown]
  - Throat irritation [Unknown]
  - Streptococcal infection [Unknown]
  - Arthritis [Unknown]
  - Off label use [Unknown]
  - Tachycardia [Unknown]
  - Weight decreased [Unknown]
  - Blood pressure increased [Unknown]
  - Chest discomfort [Unknown]
  - Product use in unapproved indication [Unknown]
  - Drug ineffective for unapproved indication [Unknown]
  - Fungal infection [Unknown]
  - Depression [Unknown]
  - Discomfort [Unknown]
  - Inflammation [Unknown]
  - Inappropriate schedule of product administration [Unknown]
  - Treatment failure [Unknown]
  - Mass [Unknown]
  - Myalgia [Unknown]
  - Feeling abnormal [Unknown]
  - Chest pain [Unknown]
  - Heart rate increased [Unknown]
  - Weight increased [Unknown]
  - Fistula [Unknown]
  - Dyspnoea [Unknown]
  - Pruritus [Unknown]
  - Back pain [Unknown]
  - Wound [Unknown]
  - Drug ineffective [Unknown]
  - Condition aggravated [Unknown]
  - Hidradenitis [Unknown]
  - Malaise [Unknown]
  - Abdominal pain [Unknown]
  - Nausea [Unknown]
  - Arthralgia [Unknown]
  - Pain [Unknown]
